FAERS Safety Report 16132127 (Version 4)
Quarter: 2019Q1

REPORT INFORMATION
  Report Type: Report from Study
  Country: CZ (occurrence: CZ)
  Receive Date: 20190329
  Receipt Date: 20190330
  Transmission Date: 20190418
  Serious: Yes (Other)
  Sender: FDA-Public Use
  Company Number: CZ-ACCORD-116115

PATIENT
  Sex: Female

DRUGS (2)
  1. IFOSFAMIDE. [Suspect]
     Active Substance: IFOSFAMIDE
     Indication: VULVAL CANCER
     Dosage: ADMINISTERED IN 10 DAYS INTERVAL
  2. CISPLATIN. [Suspect]
     Active Substance: CISPLATIN
     Indication: VULVAL CANCER
     Dosage: ADMINISTERED IN 10 DAYS INTERVAL

REACTIONS (1)
  - Haematotoxicity [Unknown]
